FAERS Safety Report 20947449 (Version 1)
Quarter: 2022Q2

REPORT INFORMATION
  Report Type: Spontaneous
  Country: US (occurrence: US)
  Receive Date: 20220610
  Receipt Date: 20220610
  Transmission Date: 20220721
  Serious: No
  Sender: FDA-Public Use
  Company Number: US-009507513-2206USA003096

PATIENT
  Sex: Female
  Weight: 54.422 kg

DRUGS (6)
  1. KEYTRUDA [Suspect]
     Active Substance: PEMBROLIZUMAB
  2. LENVATINIB MESYLATE [Suspect]
     Active Substance: LENVATINIB MESYLATE
     Indication: Endometrial cancer
     Dosage: 20 MILLIGRAM, QD
     Route: 048
     Dates: start: 20220503
  3. DIPHENHYDRAMINE HYDROCHLORIDE [Concomitant]
     Active Substance: DIPHENHYDRAMINE HYDROCHLORIDE
  4. PREDNISONE [Concomitant]
     Active Substance: PREDNISONE
  5. ZOFRAN [Concomitant]
     Active Substance: ONDANSETRON HYDROCHLORIDE
  6. VITAMINS [Concomitant]
     Active Substance: VITAMINS

REACTIONS (5)
  - Thyroid hormones decreased [Not Recovered/Not Resolved]
  - Cortisol decreased [Not Recovered/Not Resolved]
  - Hypertension [Recovered/Resolved]
  - Hypertension [Not Recovered/Not Resolved]
  - Decreased appetite [Not Recovered/Not Resolved]

NARRATIVE: CASE EVENT DATE: 20220528
